FAERS Safety Report 13906526 (Version 1)
Quarter: 2017Q3

REPORT INFORMATION
  Report Type: Spontaneous
  Country: US (occurrence: US)
  Receive Date: 20170825
  Receipt Date: 20170825
  Transmission Date: 20171127
  Serious: Yes (Life-Threatening, Hospitalization, Other)
  Sender: FDA-Public Use
  Company Number: US-SA-2017SA156665

PATIENT

DRUGS (2)
  1. LEMTRADA [Suspect]
     Active Substance: ALEMTUZUMAB
     Indication: MULTIPLE SCLEROSIS
     Route: 041
  2. LEMTRADA [Suspect]
     Active Substance: ALEMTUZUMAB
     Indication: MULTIPLE SCLEROSIS
     Route: 041

REACTIONS (9)
  - Hyperhidrosis [Unknown]
  - Cardiac failure acute [Unknown]
  - Brain natriuretic peptide increased [Unknown]
  - Fatigue [Unknown]
  - Optic neuritis [Unknown]
  - Acute pulmonary oedema [Unknown]
  - Congestive cardiomyopathy [Unknown]
  - Dyspnoea [Unknown]
  - Chest pain [Unknown]
